FAERS Safety Report 5537409-9 (Version None)
Quarter: 2007Q4

REPORT INFORMATION
  Report Type: 
  Country: None (occurrence: None)
  Receive Date: 20071207
  Receipt Date: 20071128
  Transmission Date: 20080405
  Serious: Yes (Hospitalization)
  Sender: FDA-Public Use
  Company Number: B0497785A

PATIENT
  Age: 35 Year
  Sex: Female

DRUGS (3)
  1. DEROXAT [Suspect]
     Indication: ANXIETY
     Dosage: 20MG PER DAY
     Route: 048
     Dates: start: 20071001
  2. ASPIRIN [Suspect]
     Indication: HEADACHE
     Dosage: 500MG SINGLE DOSE
     Route: 048
     Dates: start: 20071123, end: 20071123
  3. LEXOMIL [Concomitant]

REACTIONS (3)
  - ABDOMINAL PAIN [None]
  - COLITIS ISCHAEMIC [None]
  - RECTAL HAEMORRHAGE [None]
